FAERS Safety Report 20631026 (Version 1)
Quarter: 2022Q1

REPORT INFORMATION
  Report Type: Report from Study
  Country: BR (occurrence: BR)
  Receive Date: 20220324
  Receipt Date: 20220324
  Transmission Date: 20220423
  Serious: Yes (Other)
  Sender: FDA-Public Use
  Company Number: BR-JNJFOC-20220340133

PATIENT
  Age: 47 Year
  Sex: Female

DRUGS (5)
  1. SIMPONI [Suspect]
     Active Substance: GOLIMUMAB
     Indication: Rheumatoid arthritis
     Route: 058
     Dates: start: 20161204
  2. SIMPONI [Suspect]
     Active Substance: GOLIMUMAB
  3. METHOTREXATE [Concomitant]
     Active Substance: METHOTREXATE
     Dosage: 10, 15 MG
     Dates: start: 20220201
  4. METHOTREXATE [Concomitant]
     Active Substance: METHOTREXATE
     Dates: start: 20220201
  5. CODEINE [Concomitant]
     Active Substance: CODEINE

REACTIONS (8)
  - Immunosuppression [Unknown]
  - Rheumatoid arthritis [Unknown]
  - Herpes virus infection [Not Recovered/Not Resolved]
  - Synovitis [Not Recovered/Not Resolved]
  - Anxiety [Not Recovered/Not Resolved]
  - Feeling hot [Unknown]
  - Memory impairment [Not Recovered/Not Resolved]
  - Product dose omission issue [Unknown]
